FAERS Safety Report 9898453 (Version 2)
Quarter: 2014Q1

REPORT INFORMATION
  Report Type: Spontaneous
  Country: JP (occurrence: JP)
  Receive Date: 20140214
  Receipt Date: 20140214
  Transmission Date: 20141002
  Serious: Yes (Life-Threatening, Hospitalization, Other)
  Sender: FDA-Public Use
  Company Number: JP-PFIZER INC-2014034742

PATIENT
  Age: 66 Year
  Sex: Male

DRUGS (2)
  1. SOLANAX [Suspect]
     Dosage: UNK
     Route: 048
     Dates: start: 201401
  2. LENDORMIN [Concomitant]
     Dosage: UNK

REACTIONS (3)
  - Gastric haemorrhage [Recovering/Resolving]
  - Faeces discoloured [Recovering/Resolving]
  - Haematochezia [Recovering/Resolving]
